FAERS Safety Report 6427285-4 (Version None)
Quarter: 2009Q4

REPORT INFORMATION
  Report Type: 
  Country: None (occurrence: None)
  Receive Date: 20091104
  Receipt Date: 20091028
  Transmission Date: 20100525
  Serious: Yes (Other)
  Sender: FDA-Public Use
  Company Number: B0599272A

PATIENT
  Sex: Male

DRUGS (2)
  1. DILATREND [Suspect]
     Indication: ESSENTIAL HYPERTENSION
     Dosage: 75MG PER DAY
     Route: 048
     Dates: start: 20090801, end: 20090910
  2. ENAPREN [Suspect]
     Indication: ESSENTIAL HYPERTENSION
     Dosage: 20MG PER DAY
     Route: 048
     Dates: start: 20090801, end: 20090910

REACTIONS (2)
  - HYPOTENSION [None]
  - SYNCOPE [None]
